FAERS Safety Report 14030192 (Version 1)
Quarter: 2017Q4

REPORT INFORMATION
  Report Type: Report from Study
  Country: TW (occurrence: TW)
  Receive Date: 20171002
  Receipt Date: 20171002
  Transmission Date: 20180321
  Serious: Yes (Death, Hospitalization)
  Sender: FDA-Public Use
  Company Number: TW-ACTELION-A-NJ2017-155460

PATIENT
  Age: 39 Year
  Sex: Female

DRUGS (1)
  1. VENTAVIS [Suspect]
     Active Substance: ILOPROST
     Indication: PULMONARY ARTERIAL HYPERTENSION
     Dosage: 9 AMP/DAY
     Route: 055
     Dates: start: 2015

REACTIONS (5)
  - Haemoptysis [Fatal]
  - Rales [Unknown]
  - Subdural haematoma [Unknown]
  - Altered state of consciousness [Unknown]
  - Pneumonia [Unknown]

NARRATIVE: CASE EVENT DATE: 20170606
